FAERS Safety Report 8242582-8 (Version None)
Quarter: 2012Q1

REPORT INFORMATION
  Report Type: 
  Country: None (occurrence: None)
  Receive Date: 20120329
  Receipt Date: 20120321
  Transmission Date: 20120608
  Serious: Yes (Hospitalization, Other)
  Sender: FDA-Public Use
  Company Number: PHHY2008JP20294

PATIENT
  Sex: Male
  Weight: 43 kg

DRUGS (6)
  1. GLEEVEC [Suspect]
     Dosage: 200 MG, DAILY
     Route: 048
     Dates: start: 20081007
  2. HYDREA [Concomitant]
     Indication: CHRONIC MYELOID LEUKAEMIA
     Dosage: UNK UKN, UNK
  3. CALCIUM CARBONATE [Concomitant]
     Dosage: 2 DF, QD
     Route: 048
     Dates: start: 20070417
  4. LIVACT [Concomitant]
     Dosage: 2 DF, UNK
     Dates: start: 20070417
  5. GLEEVEC [Suspect]
     Indication: CHRONIC MYELOID LEUKAEMIA
     Dosage: 400 MG, DAILY
     Route: 048
     Dates: start: 20070417, end: 20080807
  6. FAMOTIDINE [Concomitant]
     Dosage: UNK UKN, UNK
     Route: 048
     Dates: start: 20070417

REACTIONS (10)
  - INTERSTITIAL LUNG DISEASE [None]
  - GASTRIC ANTRAL VASCULAR ECTASIA [None]
  - BLOOD LACTATE DEHYDROGENASE INCREASED [None]
  - RENAL FAILURE CHRONIC [None]
  - ANAEMIA [None]
  - FAECES DISCOLOURED [None]
  - GASTRIC HAEMORRHAGE [None]
  - RASH [None]
  - OXYGEN SATURATION DECREASED [None]
  - HAEMODIALYSIS [None]
